FAERS Safety Report 9819328 (Version 1)
Quarter: 2014Q1

REPORT INFORMATION
  Report Type: Spontaneous
  Country: TN (occurrence: None)
  Receive Date: 20140113
  Receipt Date: 20140113
  Transmission Date: 20141002
  Serious: Yes (Other)
  Sender: FDA-Public Use
  Company Number: FK201400073

PATIENT
  Age: 57 Year
  Sex: Male

DRUGS (2)
  1. ETOPOSIDE [Suspect]
     Indication: PANCREATIC CARCINOMA METASTATIC
  2. CISPLATIN (CISPLATIN) [Concomitant]

REACTIONS (3)
  - Atrial fibrillation [None]
  - Discomfort [None]
  - Infusion related reaction [None]
